FAERS Safety Report 8531945-9 (Version None)
Quarter: 2012Q3

REPORT INFORMATION
  Report Type: 
  Country: None (occurrence: None)
  Receive Date: 20120723
  Receipt Date: 20120713
  Transmission Date: 20120928
  Serious: Yes (Hospitalization)
  Sender: FDA-Public Use
  Company Number: ES-ABBOTT-12P-144-0956619-05

PATIENT
  Age: 35 Year
  Sex: Male

DRUGS (3)
  1. HUMIRA [Suspect]
     Indication: CROHN'S DISEASE
     Dosage: BASELINE160MG/WEEK 2 80 MG
     Route: 058
     Dates: start: 20071215, end: 20100401
  2. INFLIXIMAB [Concomitant]
     Indication: FISTULA DISCHARGE
     Dates: start: 20110906
  3. INFLIXIMAB [Concomitant]
     Indication: ANORECTAL DISORDER
     Dosage: AT BEGINNING 15 DAYS THEN Q8W
     Dates: start: 20100511

REACTIONS (2)
  - ANAL ABSCESS [None]
  - FISTULA DISCHARGE [None]
